FAERS Safety Report 17188987 (Version 2)
Quarter: 2019Q4

REPORT INFORMATION
  Report Type: Spontaneous
  Country: US (occurrence: US)
  Receive Date: 20191222
  Receipt Date: 20191230
  Transmission Date: 20200122
  Serious: No
  Sender: FDA-Public Use
  Company Number: US-TEVA-2019-US-1155345

PATIENT

DRUGS (1)
  1. BUPRENORPHINE TEVA [Suspect]
     Active Substance: BUPRENORPHINE
     Dosage: FORM STRENGTH: 15 MCG/HR
     Route: 062

REACTIONS (6)
  - Application site erosion [Unknown]
  - Application site pain [Unknown]
  - Product adhesion issue [Unknown]
  - Pain [Recovering/Resolving]
  - Loss of personal independence in daily activities [Unknown]
  - Bedridden [Unknown]
